FAERS Safety Report 21707421 (Version 4)
Quarter: 2023Q1

REPORT INFORMATION
  Report Type: Spontaneous
  Country: GB (occurrence: GB)
  Receive Date: 20221209
  Receipt Date: 20230202
  Transmission Date: 20230417
  Serious: Yes (Death, Other)
  Sender: FDA-Public Use
  Company Number: GB-ROCHE-3085093

PATIENT
  Age: 66 Year
  Sex: Female

DRUGS (19)
  1. ANAKINRA [Suspect]
     Active Substance: ANAKINRA
     Indication: Myasthenic syndrome
  2. ANAKINRA [Suspect]
     Active Substance: ANAKINRA
     Indication: Immune effector cell-associated neurotoxicity syndrome
     Dates: start: 20200121
  3. ANAKINRA [Suspect]
     Active Substance: ANAKINRA
     Indication: Lymphocyte adoptive therapy
     Dates: start: 20200124
  4. DEXAMETHASONE [Suspect]
     Active Substance: DEXAMETHASONE
     Indication: Immune effector cell-associated neurotoxicity syndrome
     Dates: start: 20200121
  5. METHYLPREDNISOLONE [Suspect]
     Active Substance: METHYLPREDNISOLONE
     Indication: Immune effector cell-associated neurotoxicity syndrome
  6. SYLVANT [Suspect]
     Active Substance: SILTUXIMAB
     Indication: Cytokine release syndrome
     Dosage: LYOPHILIZED POWDER FOR INJECTABLE SOLUTION
     Dates: start: 20191230
  7. SYLVANT [Suspect]
     Active Substance: SILTUXIMAB
     Dosage: LYOPHILIZED POWDER FOR INJECTABLE SOLUTION
     Dates: start: 20200210
  8. TOCILIZUMAB [Suspect]
     Active Substance: TOCILIZUMAB
     Indication: Immune effector cell-associated neurotoxicity syndrome
     Dosage: 4 TIMES
     Dates: start: 20200113, end: 20200120
  9. TOCILIZUMAB [Suspect]
     Active Substance: TOCILIZUMAB
     Indication: Cytokine release syndrome
  10. ACYCLOVIR [Concomitant]
     Active Substance: ACYCLOVIR
     Indication: Lymphocyte adoptive therapy
     Dates: start: 20200108
  11. AZATHIOPRINE [Concomitant]
     Active Substance: AZATHIOPRINE
     Dates: start: 20200103
  12. CIPROFLOXACIN [Concomitant]
     Active Substance: CIPROFLOXACIN
     Indication: Lymphocyte adoptive therapy
     Dates: start: 20200130
  13. FILGRASTIM [Concomitant]
     Active Substance: FILGRASTIM
     Indication: Lymphocyte adoptive therapy
     Dates: start: 20200130
  14. FLUCONAZOLE [Concomitant]
     Active Substance: FLUCONAZOLE
     Indication: Lymphocyte adoptive therapy
     Dates: start: 20200106
  15. LEVETIRACETAM [Concomitant]
     Active Substance: LEVETIRACETAM
     Indication: Lymphocyte adoptive therapy
     Dates: start: 20200108
  16. METOCLOPRAMIDE [Concomitant]
     Active Substance: METOCLOPRAMIDE
     Indication: Lymphocyte adoptive therapy
     Dates: start: 20200103
  17. ONDANSETRON [Concomitant]
     Active Substance: ONDANSETRON
     Indication: Lymphocyte adoptive therapy
     Dates: start: 20200103
  18. PREDNISOLONE [Concomitant]
     Active Substance: PREDNISOLONE
     Indication: Myasthenic syndrome
     Dates: start: 20200210
  19. FILGRASTIM [Concomitant]
     Active Substance: FILGRASTIM
     Indication: Lymphocyte adoptive therapy
     Dates: start: 20200130

REACTIONS (8)
  - Toxicity to various agents [Fatal]
  - Diffuse large B-cell lymphoma [Fatal]
  - Disease progression [Fatal]
  - Neoplasm progression [Fatal]
  - Cytokine release syndrome [Unknown]
  - Immune effector cell-associated neurotoxicity syndrome [Unknown]
  - Condition aggravated [Unknown]
  - Off label use [Fatal]

NARRATIVE: CASE EVENT DATE: 20200301
